FAERS Safety Report 17412915 (Version 2)
Quarter: 2020Q1

REPORT INFORMATION
  Report Type: Report from Study
  Country: US (occurrence: US)
  Receive Date: 20200213
  Receipt Date: 20200320
  Transmission Date: 20200409
  Serious: Yes (Other)
  Sender: FDA-Public Use
  Company Number: US-TEVA-2020-US-1182733

PATIENT
  Sex: Female

DRUGS (2)
  1. COPAXONE [Suspect]
     Active Substance: GLATIRAMER ACETATE
     Dosage: FORM STRENGTH:UNKNOWN
     Route: 065
  2. COPAXONE [Suspect]
     Active Substance: GLATIRAMER ACETATE
     Dosage: FORM STRENGTH:UNKNOWN
     Dates: start: 20191013

REACTIONS (18)
  - Narcolepsy [Recovering/Resolving]
  - Injection site erythema [Unknown]
  - Asthenia [Unknown]
  - Fall [Unknown]
  - Secondary progressive multiple sclerosis [Unknown]
  - Injection site necrosis [Unknown]
  - Injection site pruritus [Unknown]
  - Eye contusion [Unknown]
  - Muscle tightness [Unknown]
  - Skin exfoliation [Recovered/Resolved]
  - Muscle spasticity [Recovering/Resolving]
  - Restlessness [Unknown]
  - Multiple sclerosis relapse [Unknown]
  - Injection site urticaria [Unknown]
  - Wrong technique in product usage process [Unknown]
  - Injection site pain [Unknown]
  - Swelling [Recovering/Resolving]
  - Injection site indentation [Unknown]

NARRATIVE: CASE EVENT DATE: 2020
